FAERS Safety Report 15449053 (Version 1)
Quarter: 2018Q3

REPORT INFORMATION
  Report Type: Spontaneous
  Country: US (occurrence: US)
  Receive Date: 20180926
  Receipt Date: 20180926
  Transmission Date: 20181010
  Serious: No
  Sender: FDA-Public Use
  Company Number: None

PATIENT
  Sex: Female

DRUGS (1)
  1. PROGESTERONE 50MG/ML [Suspect]
     Active Substance: PROGESTERONE
     Indication: INFERTILITY
     Route: 030
     Dates: start: 20180816

REACTIONS (3)
  - Injection site erythema [None]
  - Pruritus [None]
  - Erythema [None]
